FAERS Safety Report 12746130 (Version 3)
Quarter: 2016Q4

REPORT INFORMATION
  Report Type: Spontaneous
  Country: DE (occurrence: DE)
  Receive Date: 20160915
  Receipt Date: 20161020
  Transmission Date: 20170207
  Serious: Yes (Hospitalization, Other)
  Sender: FDA-Public Use
  Company Number: PHHY2016DE124632

PATIENT
  Sex: Male

DRUGS (1)
  1. GILENYA [Suspect]
     Active Substance: FINGOLIMOD HYDROCHLORIDE
     Indication: MULTIPLE SCLEROSIS
     Dosage: 0.5 MG, QD
     Route: 065
     Dates: start: 201601

REACTIONS (12)
  - Drug resistance [Not Recovered/Not Resolved]
  - Central nervous system lesion [Unknown]
  - Progressive multifocal leukoencephalopathy [Unknown]
  - Splenomegaly [Unknown]
  - Diplopia [Unknown]
  - VIth nerve paresis [Unknown]
  - Vasculitis [Unknown]
  - Chills [Unknown]
  - Lymphopenia [Unknown]
  - Paraesthesia [Unknown]
  - Uhthoff^s phenomenon [Unknown]
  - Pyrexia [Unknown]

NARRATIVE: CASE EVENT DATE: 2016
